FAERS Safety Report 5006167-9 (Version None)
Quarter: 2006Q1

REPORT INFORMATION
  Report Type: 
  Country: None (occurrence: None)
  Receive Date: 20060328
  Receipt Date: 20050531
  Transmission Date: 20060701
  Serious: Yes (Hospitalization)
  Sender: FDA-Public Use
  Company Number: K200500756

PATIENT
  Age: 50 Year
  Sex: Female

DRUGS (1)
  1. ALTACE [Suspect]
     Dosage: ORAL
     Route: 048

REACTIONS (2)
  - ANGIONEUROTIC OEDEMA [None]
  - PHARYNGEAL OEDEMA [None]
